FAERS Safety Report 18884311 (Version 1)
Quarter: 2021Q1

REPORT INFORMATION
  Report Type: Spontaneous
  Country: US (occurrence: US)
  Receive Date: 20210211
  Receipt Date: 20210211
  Transmission Date: 20210420
  Serious: No
  Sender: FDA-Public Use
  Company Number: None

PATIENT
  Age: 26 Year
  Sex: Female
  Weight: 67.5 kg

DRUGS (15)
  1. TRETINOIN. [Concomitant]
     Active Substance: TRETINOIN
  2. ZINC. [Concomitant]
     Active Substance: ZINC
  3. EFFEXOR [Concomitant]
     Active Substance: VENLAFAXINE HYDROCHLORIDE
  4. BREAST IMPLANTS [Concomitant]
     Active Substance: DEVICE
  5. VITAMIN A [Concomitant]
     Active Substance: VITAMIN A
  6. XYREM [Concomitant]
     Active Substance: SODIUM OXYBATE
  7. VITAMIN D [Concomitant]
     Active Substance: VITAMIN D NOS
  8. COLLAGEN [Concomitant]
     Active Substance: COLLAGEN
  9. WAKIX [Suspect]
     Active Substance: PITOLISANT HYDROCHLORIDE
     Indication: HYPERSOMNIA
     Dosage: ?          QUANTITY:2 TABLET(S);?
     Route: 048
     Dates: start: 20201212, end: 20210123
  10. ALLEGRA [Concomitant]
     Active Substance: FEXOFENADINE HYDROCHLORIDE
  11. VITAMIN E [Concomitant]
     Active Substance: .ALPHA.-TOCOPHEROL
  12. SINGULAIR [Concomitant]
     Active Substance: MONTELUKAST SODIUM
  13. VITAMIN B [Concomitant]
     Active Substance: VITAMIN B
  14. VITAMIN C [Concomitant]
     Active Substance: ASCORBIC ACID
  15. MAGNESIUM [Concomitant]
     Active Substance: MAGNESIUM

REACTIONS (10)
  - Arthralgia [None]
  - Palpitations [None]
  - Tachycardia [None]
  - Pyrexia [None]
  - Hot flush [None]
  - Dyspepsia [None]
  - Headache [None]
  - Fatigue [None]
  - Paraesthesia [None]
  - Hypertension [None]

NARRATIVE: CASE EVENT DATE: 20210117
